FAERS Safety Report 11428735 (Version 2)
Quarter: 2015Q3

REPORT INFORMATION
  Report Type: Spontaneous
  Country: CN (occurrence: CN)
  Receive Date: 20150828
  Receipt Date: 20150909
  Transmission Date: 20151125
  Serious: Yes (Hospitalization)
  Sender: FDA-Public Use
  Company Number: PHHY2015CN103054

PATIENT
  Age: 64 Year
  Sex: Female

DRUGS (1)
  1. ZOLEDRONATE [Suspect]
     Active Substance: ZOLEDRONIC ACID
     Indication: METASTASES TO BONE
     Dosage: 4 MG, QMO
     Route: 042
     Dates: start: 200902, end: 201012

REACTIONS (7)
  - Exposed bone in jaw [Recovered/Resolved]
  - Gingival recession [Recovered/Resolved]
  - Osteosclerosis [Recovered/Resolved]
  - Loose tooth [Unknown]
  - Purulent discharge [Recovered/Resolved]
  - Osteonecrosis of jaw [Recovered/Resolved]
  - Pain in jaw [Recovered/Resolved]

NARRATIVE: CASE EVENT DATE: 201104
